FAERS Safety Report 8622500-0 (Version None)
Quarter: 2012Q3

REPORT INFORMATION
  Report Type: 
  Country: None (occurrence: None)
  Receive Date: 20120827
  Receipt Date: 20120822
  Transmission Date: 20120928
  Serious: No
  Sender: FDA-Public Use
  Company Number: US-PFIZER INC-2012187809

PATIENT
  Age: 70 Year
  Sex: Female
  Weight: 90.703 kg

DRUGS (3)
  1. TIKOSYN [Suspect]
     Indication: ATRIAL FIBRILLATION
     Dosage: 250 UG, 2X/DAY
     Route: 048
     Dates: start: 20120101
  2. DILTIAZEM [Concomitant]
     Indication: ATRIAL FIBRILLATION
     Dosage: 120 MG, DAILY
  3. COUMADIN [Concomitant]
     Indication: ANTICOAGULANT THERAPY
     Dosage: UNK,DAILY

REACTIONS (10)
  - PALPITATIONS [None]
  - FATIGUE [None]
  - ABNORMAL BEHAVIOUR [None]
  - HEART RATE IRREGULAR [None]
  - RASH PRURITIC [None]
  - DIARRHOEA [None]
  - HEADACHE [None]
  - LIP DISCOLOURATION [None]
  - DECREASED APPETITE [None]
  - HYPERTENSION [None]
